FAERS Safety Report 8614121 (Version 8)
Quarter: 2013Q1

REPORT INFORMATION
  Report Type: Spontaneous
  Country: US (occurrence: None)
  Receive Date: 20120531
  Receipt Date: 20130318
  Transmission Date: 20140127
  Serious: Yes (Hospitalization)
  Sender: FDA-Public Use
  Company Number: 12P-163-0932063-00

PATIENT
  Age: 55 Year
  Sex: Female
  Weight: 105.5 kg

DRUGS (11)
  1. METHOTREXATE [Suspect]
     Indication: RHEUMATOID ARTHRITIS
     Dosage: (1 IN 1 WK)
     Route: 048
     Dates: start: 20120405, end: 20120426
  2. METHOTREXATE [Suspect]
     Dosage: (1 IN 1 WK)
     Route: 048
     Dates: start: 20120405, end: 20120426
  3. HUMIRA [Suspect]
     Indication: RHEUMATOID ARTHRITIS
     Dosage: (1 IN 2 WK)
     Route: 058
     Dates: start: 20120405, end: 20120419
  4. HUMIRA [Suspect]
     Dosage: (1 IN 2 WK)
     Route: 058
     Dates: start: 20120405, end: 20120419
  5. METHOTREXATE [Concomitant]
  6. BACTRIM [Concomitant]
  7. CEFALEXIN [Concomitant]
  8. MELOXICAM [Concomitant]
  9. NITROGLYCERIN [Concomitant]
  10. FOLIC ACID [Concomitant]
  11. PREDNISONE (PREDNISONE) [Concomitant]

REACTIONS (8)
  - Pneumonia legionella [None]
  - Anaemia [None]
  - Thrombocytopenia [None]
  - Electrolyte imbalance [None]
  - Dehydration [None]
  - Hypovolaemia [None]
  - Decreased appetite [None]
  - Immunosuppression [None]
